FAERS Safety Report 5225883-7 (Version None)
Quarter: 2007Q1

REPORT INFORMATION
  Report Type: 
  Country: None (occurrence: None)
  Receive Date: 20070201
  Receipt Date: 20070122
  Transmission Date: 20070707
  Serious: Yes (Hospitalization)
  Sender: FDA-Public Use
  Company Number: HQWYE228123JAN07

PATIENT
  Sex: Male
  Weight: 75.36 kg

DRUGS (12)
  1. RAPAMUNE [Suspect]
     Indication: PROPHYLAXIS AGAINST TRANSPLANT REJECTION
     Route: 048
     Dates: start: 20041011
  2. INSULIN [Concomitant]
  3. DIPHENHYDRAMINE HYDROCHLORIDE [Concomitant]
  4. DOCUSATE [Concomitant]
  5. ZANTAC [Concomitant]
  6. CARAFATE [Concomitant]
  7. LORTAB [Concomitant]
  8. AVODART [Concomitant]
  9. LIPITOR [Concomitant]
  10. FLOMAX [Concomitant]
  11. PROTONIX [Concomitant]
  12. HYDROXYZINE [Concomitant]

REACTIONS (1)
  - HEPATIC NEOPLASM MALIGNANT [None]
